FAERS Safety Report 15598825 (Version 1)
Quarter: 2018Q4

REPORT INFORMATION
  Report Type: Spontaneous
  Country: US (occurrence: US)
  Receive Date: 20181108
  Receipt Date: 20181108
  Transmission Date: 20190205
  Serious: Yes (Hospitalization)
  Sender: FDA-Public Use
  Company Number: None

PATIENT
  Sex: Female

DRUGS (35)
  1. CYMBALTA [Concomitant]
     Active Substance: DULOXETINE HYDROCHLORIDE
  2. CEVIMELINE. [Concomitant]
     Active Substance: CEVIMELINE
  3. CYCLOBENZAPRINE. [Concomitant]
     Active Substance: CYCLOBENZAPRINE
  4. YUVAFEM [Concomitant]
     Active Substance: ESTRADIOL HEMIHYDRATE
  5. TRIAMT [Concomitant]
  6. TOPAMAX [Concomitant]
     Active Substance: TOPIRAMATE
  7. TESTOST CYP [Concomitant]
     Active Substance: TESTOSTERONE CYPIONATE
  8. DULOXETINE. [Concomitant]
     Active Substance: DULOXETINE
  9. HUMIRA [Suspect]
     Active Substance: ADALIMUMAB
     Indication: RHEUMATOID ARTHRITIS
     Dosage: ?          OTHER FREQUENCY:QW;?
     Route: 058
     Dates: start: 20170208
  10. PAZEO [Concomitant]
     Active Substance: OLOPATADINE HYDROCHLORIDE
  11. FISH OIL [Concomitant]
     Active Substance: FISH OIL
  12. CELECOXIB. [Concomitant]
     Active Substance: CELECOXIB
  13. FOLIC ACID. [Concomitant]
     Active Substance: FOLIC ACID
  14. ARMOUR THYROID [Concomitant]
     Active Substance: THYROID, PORCINE
  15. WELCHOL [Concomitant]
     Active Substance: COLESEVELAM HYDROCHLORIDE
  16. NUVIGIL [Concomitant]
     Active Substance: ARMODAFINIL
  17. MULTIVITAMIN [Concomitant]
     Active Substance: VITAMINS
  18. IRON [Concomitant]
     Active Substance: IRON
  19. EVOXAC [Concomitant]
     Active Substance: CEVIMELINE HYDROCHLORIDE
  20. FEXOFENADINE [Concomitant]
     Active Substance: FEXOFENADINE\FEXOFENADINE HYDROCHLORIDE
  21. CALCIFEROL [ERGOCALCIFEROL] [Concomitant]
     Active Substance: ERGOCALCIFEROL
  22. ESTRADIOL. [Concomitant]
     Active Substance: ESTRADIOL
  23. DOXYCYCL HYC [Concomitant]
  24. DEXILANT [Concomitant]
     Active Substance: DEXLANSOPRAZOLE
  25. HCTZ [Concomitant]
     Active Substance: HYDROCHLOROTHIAZIDE
  26. METANX [Concomitant]
     Active Substance: LEVOMEFOLATE CALCIUM\METHYLCOBALAMIN\PYRIDOXAL PHOSPHATE ANHYDROUS
  27. LEFLU NOMIDE [Concomitant]
  28. CELEBREX [Concomitant]
     Active Substance: CELECOXIB
  29. ALPRAZOLAM. [Concomitant]
     Active Substance: ALPRAZOLAM
  30. RESTASIS [Concomitant]
     Active Substance: CYCLOSPORINE
  31. MYRBETRIQ [Concomitant]
     Active Substance: MIRABEGRON
  32. METHOTREXATE. [Concomitant]
     Active Substance: METHOTREXATE
  33. FLUTICASONE. [Concomitant]
     Active Substance: FLUTICASONE
  34. AMBIEN [Concomitant]
     Active Substance: ZOLPIDEM TARTRATE
  35. TOPIRAMATE. [Concomitant]
     Active Substance: TOPIRAMATE

REACTIONS (3)
  - Condition aggravated [None]
  - Surgery [None]
  - Product dose omission [None]
